FAERS Safety Report 5853634-1 (Version None)
Quarter: 2008Q3

REPORT INFORMATION
  Report Type: 
  Country: None (occurrence: None)
  Receive Date: 20080822
  Receipt Date: 20080811
  Transmission Date: 20090109
  Serious: Yes (Hospitalization, Other)
  Sender: FDA-Public Use
  Company Number: FR-NOVOPROD-277415

PATIENT
  Age: 44 Year
  Sex: Female
  Weight: 105 kg

DRUGS (3)
  1. NORDITROPIN [Suspect]
     Indication: GROWTH HORMONE DEFICIENCY
     Dosage: .3 G, QD
     Route: 058
     Dates: start: 20050415, end: 20070918
  2. NORDITROPIN [Suspect]
     Dosage: .25 G, QD
     Route: 058
     Dates: start: 20030101, end: 20040123
  3. ANESTHETICS NOS [Concomitant]
     Indication: SURGERY

REACTIONS (1)
  - MENINGIOMA [None]
